FAERS Safety Report 21765046 (Version 2)
Quarter: 2023Q1

REPORT INFORMATION
  Report Type: Spontaneous
  Country: US (occurrence: US)
  Receive Date: 20221222
  Receipt Date: 20230113
  Transmission Date: 20230417
  Serious: No
  Sender: FDA-Public Use
  Company Number: US-BAUSCHBL-2022BNL003029

PATIENT
  Sex: Female

DRUGS (2)
  1. LUMIFY [Suspect]
     Active Substance: BRIMONIDINE TARTRATE
     Indication: Eye disorder
     Route: 047
  2. LUMIFY [Suspect]
     Active Substance: BRIMONIDINE TARTRATE
     Route: 047

REACTIONS (2)
  - Product quality issue [Unknown]
  - Therapeutic product effect decreased [Unknown]

NARRATIVE: CASE EVENT DATE: 20220101
